FAERS Safety Report 9822789 (Version 2)
Quarter: 2014Q2

REPORT INFORMATION
  Report Type: Spontaneous
  Country: US (occurrence: US)
  Receive Date: 20140116
  Receipt Date: 20140523
  Transmission Date: 20141212
  Serious: Yes (Death, Hospitalization, Other)
  Sender: FDA-Public Use
  Company Number: US-B.I. PHARMACEUTICALS,INC./RIDGEFIELD-2014-BI-01478BP

PATIENT
  Age: 86 Year
  Sex: Male
  Weight: 63 kg

DRUGS (5)
  1. PRADAXA [Suspect]
     Indication: ATRIAL FIBRILLATION
     Route: 065
     Dates: start: 20120113, end: 20120712
  2. SYNTHROID [Concomitant]
     Route: 048
  3. TOPROL XL [Concomitant]
     Dosage: 200 MG
     Route: 048
  4. ASPIRIN [Concomitant]
     Dosage: 81 MG
     Route: 065
  5. NITROSTAT [Concomitant]
     Route: 060

REACTIONS (4)
  - Cerebral haemorrhage [Fatal]
  - Respiratory distress [Unknown]
  - Haemorrhagic stroke [Unknown]
  - Conjunctival haemorrhage [Unknown]
